FAERS Safety Report 9848131 (Version 2)
Quarter: 2014Q2

REPORT INFORMATION
  Report Type: Spontaneous
  Country: US (occurrence: US)
  Receive Date: 20140128
  Receipt Date: 20140520
  Transmission Date: 20141212
  Serious: Yes (Other)
  Sender: FDA-Public Use
  Company Number: US-PFIZER INC-2014022940

PATIENT
  Age: 66 Year
  Sex: Male
  Weight: 77.1 kg

DRUGS (3)
  1. MORPHINE SULFATE [Suspect]
     Indication: PAIN
     Dosage: 200 MG, 3X/DAY
     Route: 048
  2. OXYMORPHONE [Suspect]
     Dosage: UNK
     Route: 065
  3. SUBOXONE [Suspect]
     Dosage: UNK
     Route: 065

REACTIONS (1)
  - Drug abuse [Unknown]
